FAERS Safety Report 10287269 (Version 1)
Quarter: 2014Q3

REPORT INFORMATION
  Report Type: Spontaneous
  Country: US (occurrence: None)
  Receive Date: 20140707
  Receipt Date: 20140707
  Transmission Date: 20150326
  Serious: Yes (Hospitalization)
  Sender: FDA-Public Use
  Company Number: None

PATIENT
  Age: 49 Year
  Sex: Male

DRUGS (2)
  1. ATORVASTATIN 40MG WATSON [Suspect]
     Active Substance: ATORVASTATIN
     Route: 048
     Dates: start: 201403, end: 201407
  2. MULTAQ [Suspect]
     Active Substance: DRONEDARONE
     Route: 048
     Dates: start: 201403, end: 201407

REACTIONS (1)
  - Muscle spasms [None]

NARRATIVE: CASE EVENT DATE: 20140703
